FAERS Safety Report 7621471-3 (Version None)
Quarter: 2011Q3

REPORT INFORMATION
  Report Type: 
  Country: None (occurrence: None)
  Receive Date: 20110719
  Receipt Date: 20110712
  Transmission Date: 20111222
  Serious: Yes (Congenital Anomaly, Other)
  Sender: FDA-Public Use
  Company Number: US-PFIZER INC-2011158495

PATIENT
  Sex: Female
  Weight: 4 kg

DRUGS (3)
  1. EFFEXOR [Suspect]
     Dosage: UNK
     Route: 064
     Dates: start: 20060401
  2. FOLIC ACID [Concomitant]
     Dosage: UNK,
     Route: 064
  3. PRENATAL [Concomitant]
     Dosage: UNK,
     Route: 064

REACTIONS (11)
  - PULMONARY ARTERY STENOSIS [None]
  - PATENT DUCTUS ARTERIOSUS [None]
  - HYPOPLASTIC LEFT HEART SYNDROME [None]
  - HETEROTAXIA [None]
  - MITRAL VALVE INCOMPETENCE [None]
  - MATERNAL EXPOSURE DURING PREGNANCY [None]
  - DOUBLE OUTLET RIGHT VENTRICLE [None]
  - AORTIC VALVE INCOMPETENCE [None]
  - TRANSPOSITION OF THE GREAT VESSELS [None]
  - TAKAYASU'S ARTERITIS [None]
  - TRICUSPID VALVE INCOMPETENCE [None]
